FAERS Safety Report 9737156 (Version 1)
Quarter: 2013Q4

REPORT INFORMATION
  Report Type: Report from Study
  Country: ES (occurrence: ES)
  Receive Date: 20131206
  Receipt Date: 20131206
  Transmission Date: 20140711
  Serious: Yes (Hospitalization)
  Sender: FDA-Public Use
  Company Number: ES-ABBVIE-13P-144-1174239-00

PATIENT
  Age: 40 Year
  Sex: Male
  Weight: 65 kg

DRUGS (3)
  1. HUMIRA [Suspect]
     Indication: CROHN^S DISEASE
     Route: 058
     Dates: start: 2005
  2. HUMIRA [Suspect]
     Dates: start: 2007, end: 2008
  3. AZATHIOPRINE [Concomitant]
     Indication: CROHN^S DISEASE
     Route: 048
     Dates: start: 1999, end: 2008

REACTIONS (2)
  - Haemorrhage [Recovered/Resolved]
  - Drug effect decreased [Recovered/Resolved]
